FAERS Safety Report 6473358-X (Version None)
Quarter: 2009Q4

REPORT INFORMATION
  Report Type: 
  Country: None (occurrence: None)
  Receive Date: 20091204
  Receipt Date: 20091130
  Transmission Date: 20100525
  Serious: Yes (Other)
  Sender: FDA-Public Use
  Company Number: US-ALLERGAN-0915379US

PATIENT
  Age: 47 Year
  Sex: Female
  Weight: 63.946 kg

DRUGS (2)
  1. BOTOX COSMETIC [Suspect]
     Indication: SKIN WRINKLING
     Dosage: 35 UNITS, SINGLE
     Route: 030
     Dates: start: 20091023, end: 20091023
  2. BOTOX COSMETIC [Suspect]
     Indication: MIGRAINE

REACTIONS (8)
  - BALANCE DISORDER [None]
  - DIZZINESS [None]
  - DYSPHAGIA [None]
  - FEELING ABNORMAL [None]
  - FEELING HOT [None]
  - PARAESTHESIA [None]
  - SENSORY DISTURBANCE [None]
  - VERTIGO POSITIONAL [None]
